FAERS Safety Report 6215712-7 (Version None)
Quarter: 2009Q2

REPORT INFORMATION
  Report Type: 
  Country: None (occurrence: None)
  Receive Date: 20090605
  Receipt Date: 20090526
  Transmission Date: 20091009
  Serious: Yes (Hospitalization)
  Sender: FDA-Public Use
  Company Number: FR-BAYER-200922078GPV

PATIENT
  Age: 70 Year
  Sex: Male

DRUGS (7)
  1. GLUCOR [Suspect]
     Indication: DRUG USE FOR UNKNOWN INDICATION
     Route: 048
     Dates: end: 20090228
  2. RIFINAH [Suspect]
     Indication: DRUG USE FOR UNKNOWN INDICATION
     Dosage: 300MG/150MG
     Route: 048
     Dates: start: 20090128, end: 20090226
  3. ZYLORIC [Suspect]
     Indication: DRUG USE FOR UNKNOWN INDICATION
     Route: 048
     Dates: end: 20090228
  4. TAHOR [Suspect]
     Indication: DRUG USE FOR UNKNOWN INDICATION
     Route: 048
     Dates: end: 20090228
  5. RIMACTANE [Concomitant]
     Indication: DRUG USE FOR UNKNOWN INDICATION
     Dosage: TOTAL DAILY DOSE: 600 MG  UNIT DOSE: 600 MG
     Route: 048
     Dates: start: 20090227
  6. OFLOCET [Concomitant]
     Indication: DRUG USE FOR UNKNOWN INDICATION
     Dosage: AS USED: 200 - 200 MG  UNIT DOSE: 200 MG
     Route: 048
  7. CORTANCYL [Concomitant]
     Indication: DRUG USE FOR UNKNOWN INDICATION
     Route: 048
     Dates: start: 20090223, end: 20090301

REACTIONS (1)
  - CYTOLYTIC HEPATITIS [None]
